FAERS Safety Report 23619196 (Version 1)
Quarter: 2024Q1

REPORT INFORMATION
  Report Type: Spontaneous
  Country: NL (occurrence: NL)
  Receive Date: 20240311
  Receipt Date: 20240311
  Transmission Date: 20240410
  Serious: Yes (Life-Threatening, Disabling, Other)
  Sender: FDA-Public Use
  Company Number: None

PATIENT
  Age: 35 Year
  Sex: Female
  Weight: 135 kg

DRUGS (10)
  1. GLICLAZIDE [Suspect]
     Active Substance: GLICLAZIDE
     Indication: Diabetes mellitus
     Dosage: MGA / BRAND NAME NOT SPECIFIED
     Route: 065
     Dates: start: 20200101
  2. AKINETON [Concomitant]
     Active Substance: BIPERIDEN HYDROCHLORIDE
     Indication: Product used for unknown indication
     Dosage: BIPERIDEEN TABLET 2MG / AKINETON TABLET 2MG
     Route: 065
  3. ARIPIPRAZOLE [Suspect]
     Active Substance: ARIPIPRAZOLE
     Indication: Product used for unknown indication
     Dosage: 1 INJECTION EVERY 25 DAYS, PDR V INJSUSP 400MG / ABILIFY MAINTENA INJPDR MVA VIAL 400MG +SOLV 2ML
     Route: 065
     Dates: start: 20230202
  4. LEVOTHYROXINE [Suspect]
     Active Substance: LEVOTHYROXINE\LEVOTHYROXINE SODIUM
     Indication: Graves^ disease
     Dosage: 1 X 1 PER DAY (ZUUR) / THYRAX DUOTAB TABLET 0,100MG
     Route: 065
     Dates: start: 20200101
  5. OXAZEPAM [Concomitant]
     Active Substance: OXAZEPAM
     Indication: Product used for unknown indication
     Dosage: BRAND NAME NOT SPECIFIED
     Route: 065
  6. METOPROLOL [Suspect]
     Active Substance: METOPROLOL
     Indication: Cardiac disorder
     Dosage: TARTRAAT / BRAND NAME NOT SPECIFIED
     Route: 065
     Dates: start: 20200101
  7. METFORMIN [Suspect]
     Active Substance: METFORMIN HYDROCHLORIDE
     Indication: Diabetes mellitus
     Dosage: 1 PIECE 3 TIMES A DAY / BRAND NAME NOT SPECIFIED
     Route: 065
     Dates: start: 20200101
  8. CARBASPIRIN CALCIUM [Suspect]
     Active Substance: CARBASPIRIN CALCIUM
     Indication: Cardiac disorder
     Dosage: 1 X 1 TIME PER DAY/ ASCAL BRISPER CARDIO-NEURO EFFFERENT TABLET 100MG
     Route: 065
     Dates: start: 20201007
  9. LORAZEPAM [Concomitant]
     Active Substance: LORAZEPAM
     Indication: Product used for unknown indication
     Dosage: BRAND NAME NOT SPECIFIED
     Route: 065
  10. HYDROCHLOROTHIAZIDE [Suspect]
     Active Substance: HYDROCHLOROTHIAZIDE
     Indication: Cardiac disorder
     Dosage: 1 X 1 OVERDAG, BRAND NAME NOT SPECIFIED
     Route: 065
     Dates: start: 20200101

REACTIONS (5)
  - Swelling [Unknown]
  - Cardiac disorder [Unknown]
  - Dysphagia [Unknown]
  - Chest pain [Unknown]
  - Dyspnoea [Unknown]
